FAERS Safety Report 6433377-6 (Version None)
Quarter: 2009Q4

REPORT INFORMATION
  Report Type: 
  Country: None (occurrence: None)
  Receive Date: 20091109
  Receipt Date: 20091028
  Transmission Date: 20100525
  Serious: Yes (Hospitalization)
  Sender: FDA-Public Use
  Company Number: GB-MERCK-0910GBR00099

PATIENT
  Age: 59 Year
  Sex: Male
  Weight: 83 kg

DRUGS (4)
  1. PRINIVIL [Suspect]
     Indication: HYPERTENSION
     Route: 048
     Dates: start: 20080101, end: 20090101
  2. PRINIVIL [Suspect]
     Route: 048
     Dates: start: 20090101, end: 20091010
  3. ACETAMINOPHEN [Concomitant]
     Route: 065
  4. SIMVASTATIN [Concomitant]
     Route: 065
     Dates: end: 20090701

REACTIONS (1)
  - HEPATOTOXICITY [None]
